FAERS Safety Report 10007667 (Version 1)
Quarter: 2014Q1

REPORT INFORMATION
  Report Type: Spontaneous
  Country: US (occurrence: US)
  Receive Date: 20140313
  Receipt Date: 20140313
  Transmission Date: 20141002
  Serious: No
  Sender: FDA-Public Use
  Company Number: US-SHIRE-US201400481

PATIENT
  Sex: 0

DRUGS (4)
  1. VYVANSE [Suspect]
     Indication: ATTENTION DEFICIT/HYPERACTIVITY DISORDER
     Dosage: 40 MG, 1X/DAY:QD (30 MG IN THE AFTERNOON)
     Route: 048
  2. VYVANSE [Suspect]
     Dosage: 50 MG, 1X/DAY:QD (30 MG IN THE AFTERNOON)
     Route: 048
  3. VYVANSE [Suspect]
     Dosage: 30 MG, 1X/DAY:QD (IN THE AFTERNOON)
     Route: 048
  4. LISINOPRIL [Concomitant]
     Indication: PRODUCT USED FOR UNKNOWN INDICATION
     Dosage: 20 MG, UNKNOWN
     Route: 065

REACTIONS (5)
  - Logorrhoea [Unknown]
  - Drug effect decreased [Unknown]
  - Inappropriate schedule of drug administration [Unknown]
  - Heart rate increased [Unknown]
  - Overdose [Unknown]
